FAERS Safety Report 15181839 (Version 1)
Quarter: 2018Q3

REPORT INFORMATION
  Report Type: Spontaneous
  Country: JP (occurrence: JP)
  Receive Date: 20180723
  Receipt Date: 20180723
  Transmission Date: 20181010
  Serious: Yes (Life-Threatening, Other)
  Sender: FDA-Public Use
  Company Number: JP-SA-2017SA114129

PATIENT
  Age: 77 Year
  Sex: Female
  Weight: 60 kg

DRUGS (24)
  1. NICORANDIL [Suspect]
     Active Substance: NICORANDIL
     Dosage: 5 MG,QD,ADMINISTERED ON THE DAY OF THE SURGERY
     Route: 048
  2. ROCURONIUM BROMIDE. [Suspect]
     Active Substance: ROCURONIUM BROMIDE
     Dosage: 40 MG,QD
  3. ZOLPIDEM TARTRATE. [Suspect]
     Active Substance: ZOLPIDEM TARTRATE
     Indication: INSOMNIA
     Dosage: 5 MG,QD
     Route: 048
  4. MIDAZOLAM [Suspect]
     Active Substance: MIDAZOLAM HYDROCHLORIDE
     Indication: MAINTENANCE OF ANAESTHESIA
     Dosage: 6 MG,TOTAL
  5. ROCURONIUM BROMIDE. [Suspect]
     Active Substance: ROCURONIUM BROMIDE
     Indication: HYPOTONIA
     Dosage: 40 MG,QD
  6. REMIFENTANIL [Suspect]
     Active Substance: REMIFENTANIL
     Dosage: .1 UG/KG,UNK
     Route: 042
  7. SIMVASTATIN. [Concomitant]
     Active Substance: SIMVASTATIN
     Dosage: 5 MG, QD
     Route: 048
  8. NOREPINEPHRINE. [Concomitant]
     Active Substance: NOREPINEPHRINE
     Indication: HYPOTENSION
  9. SEVOFLURANE. [Suspect]
     Active Substance: SEVOFLURANE
     Indication: INDUCTION OF ANAESTHESIA
     Dosage: UNK UNK,1X
  10. MILNACIPRAN [Suspect]
     Active Substance: MILNACIPRAN
     Indication: DEPRESSION
     Dosage: 100 MG,QD
     Route: 048
  11. EPHEDRIN [Concomitant]
     Active Substance: EPHEDRINE HYDROCHLORIDE
     Indication: HYPOTENSION
     Dosage: UNK
  12. PHENYLEPHRINE [Concomitant]
     Active Substance: PHENYLEPHRINE\PHENYLEPHRINE HYDROCHLORIDE
     Indication: HYPOTENSION
  13. ALPRAZOLAM. [Suspect]
     Active Substance: ALPRAZOLAM
     Dosage: .4 MG,QD
     Route: 048
  14. REMIFENTANIL [Suspect]
     Active Substance: REMIFENTANIL
     Indication: MAINTENANCE OF ANAESTHESIA
     Dosage: .2 UG/KG,UNK,1 MIN
     Route: 040
  15. PAROXETINE HYDROCHLORIDE. [Suspect]
     Active Substance: PAROXETINE HYDROCHLORIDE
     Indication: DEPRESSION
     Dosage: 20 MG,QD
     Route: 048
  16. CANDESARTAN CILEXETIL. [Suspect]
     Active Substance: CANDESARTAN CILEXETIL
     Dosage: 8 MG,QD
     Route: 048
  17. IMIPRAMINE HYDROCHLORIDE. [Interacting]
     Active Substance: IMIPRAMINE HYDROCHLORIDE
     Indication: DEPRESSION
     Dosage: 60 MG,QD
     Route: 048
  18. BENIDIPINE [Suspect]
     Active Substance: BENIDIPINE
     Indication: DEPRESSION
     Dosage: 4 MG,QD,ADMINISTERED ON THE DAY OF THE SURGERY
     Route: 048
  19. IMIPRAMINE HYDROCHLORIDE. [Interacting]
     Active Substance: IMIPRAMINE HYDROCHLORIDE
     Dosage: 30 MG,QD
     Route: 048
  20. REMIFENTANIL [Suspect]
     Active Substance: REMIFENTANIL
     Dosage: .1 UG/KG,UNK
     Route: 042
  21. PROPOFOL. [Suspect]
     Active Substance: PROPOFOL
     Indication: MAINTENANCE OF ANAESTHESIA
     Dosage: 80 MG,QD
     Route: 040
  22. TRIAZOLAM. [Suspect]
     Active Substance: TRIAZOLAM
     Dosage: .25 MG,QD
     Route: 048
  23. REMIFENTANIL [Suspect]
     Active Substance: REMIFENTANIL
     Dosage: .1 UG/KG,UNK
     Route: 042
  24. ARTIST [Concomitant]
     Active Substance: CARVEDILOL
     Dosage: 10 MG, QD
     Route: 048

REACTIONS (3)
  - Hypotension [Recovered/Resolved]
  - Drug level increased [Recovered/Resolved]
  - Drug interaction [Unknown]
